FAERS Safety Report 9444195 (Version 2)
Quarter: 2014Q3

REPORT INFORMATION
  Report Type: Spontaneous
  Country: FR (occurrence: FR)
  Receive Date: 20130807
  Receipt Date: 20140704
  Transmission Date: 20150326
  Serious: Yes (Life-Threatening)
  Sender: FDA-Public Use
  Company Number: FR-ROCHE-1258063

PATIENT
  Age: 65 Year
  Sex: Female

DRUGS (3)
  1. AZANTAC [Suspect]
     Active Substance: RANITIDINE HYDROCHLORIDE
     Indication: PRODUCT USED FOR UNKNOWN INDICATION
     Dosage: 50 MG, 50 MG/ 2 ML
     Route: 042
     Dates: start: 20130725, end: 20130725
  2. ACTILYSE [Suspect]
     Active Substance: ALTEPLASE
     Indication: ISCHAEMIC STROKE
     Dosage: 66.5 MG, 1 IN 1 D
     Route: 042
     Dates: start: 20130725, end: 20130725
  3. LOXEN (FRANCE) [Suspect]
     Active Substance: NICARDIPINE HYDROCHLORIDE
     Indication: PRODUCT USED FOR UNKNOWN INDICATION
     Dosage: 5 MG, 10 MG/ 10ML
     Route: 042
     Dates: start: 20130725, end: 20130725

REACTIONS (1)
  - Anaphylactic shock [Recovered/Resolved]

NARRATIVE: CASE EVENT DATE: 20130725
